FAERS Safety Report 14358545 (Version 1)
Quarter: 2018Q1

REPORT INFORMATION
  Report Type: Spontaneous
  Country: US (occurrence: US)
  Receive Date: 20180105
  Receipt Date: 20180105
  Transmission Date: 20180509
  Serious: No
  Sender: FDA-Public Use
  Company Number: US-SA-2017SA213594

PATIENT
  Age: 59 Year
  Sex: Male

DRUGS (5)
  1. ALLEGRA-D [Concomitant]
     Active Substance: FEXOFENADINE\PSEUDOEPHEDRINE
     Route: 065
     Dates: start: 20171009
  2. DUPIXENT [Suspect]
     Active Substance: DUPILUMAB
     Indication: DERMATITIS ATOPIC
     Route: 058
     Dates: start: 20171010, end: 20171010
  3. BUPROPION. [Concomitant]
     Active Substance: BUPROPION
     Dosage: STRENGTH: 300 MG
     Route: 065
     Dates: start: 20170122, end: 20170905
  4. VYVANSE [Concomitant]
     Active Substance: LISDEXAMFETAMINE DIMESYLATE
     Dosage: STOP DATE: WILL ON 23-NOV-2017?STRENGTH: 40 MG
     Route: 065
     Dates: start: 20170302
  5. CYCLOSPORIN [Concomitant]
     Active Substance: CYCLOSPORINE
     Dosage: STRENGTH: 100 MG
     Route: 065
     Dates: start: 20170201, end: 20171001

REACTIONS (4)
  - Rash [Unknown]
  - Condition aggravated [Unknown]
  - Discomfort [Unknown]
  - Product use issue [Unknown]
